FAERS Safety Report 5019031-6 (Version None)
Quarter: 2006Q2

REPORT INFORMATION
  Report Type: 
  Country: None (occurrence: None)
  Receive Date: 20060530
  Receipt Date: 20060522
  Transmission Date: 20061013
  Serious: Yes (Other)
  Sender: FDA-Public Use
  Company Number: 145470USA

PATIENT
  Age: 46 Year
  Sex: Male
  Weight: 92.0802 kg

DRUGS (9)
  1. COPAXONE [Suspect]
     Indication: MULTIPLE SCLEROSIS
     Dosage: 20 MILLIGRAM DAILY SUBCUTANEOUS
     Route: 058
     Dates: start: 20011101
  2. ACIPHEX [Concomitant]
  3. ARICEPT [Concomitant]
  4. ZONEGRAN [Concomitant]
  5. CELEXA [Concomitant]
  6. KLONOPIN [Concomitant]
  7. TERAZOSIN HCL [Concomitant]
  8. BACLOFEN [Concomitant]
  9. B-12 [Concomitant]

REACTIONS (3)
  - INJECTION SITE NECROSIS [None]
  - INJECTION SITE REACTION [None]
  - OSTEONECROSIS [None]
